FAERS Safety Report 8188127-2 (Version None)
Quarter: 2012Q1

REPORT INFORMATION
  Report Type: 
  Country: None (occurrence: None)
  Receive Date: 20120306
  Receipt Date: 20120227
  Transmission Date: 20120608
  Serious: Yes (Hospitalization)
  Sender: FDA-Public Use
  Company Number: US-BAYER-2011-075314

PATIENT
  Age: 23 Year
  Sex: Female
  Weight: 70.295 kg

DRUGS (3)
  1. PROTONIX [Concomitant]
     Dosage: UNK UNK, QD
     Route: 048
  2. ORTHO TRI-CYCLEN [Concomitant]
  3. YAZ [Suspect]
     Indication: ACNE
     Dosage: UNK
     Route: 048
     Dates: start: 20080901, end: 20081201

REACTIONS (4)
  - INJURY [None]
  - CHOLECYSTITIS CHRONIC [None]
  - GALLBLADDER INJURY [None]
  - PAIN [None]
